FAERS Safety Report 18262913 (Version 1)
Quarter: 2020Q3

REPORT INFORMATION
  Report Type: Spontaneous
  Country: US (occurrence: US)
  Receive Date: 20200914
  Receipt Date: 20200914
  Transmission Date: 20201103
  Serious: No
  Sender: FDA-Public Use
  Company Number: US-TEVA-2020-US-1827542

PATIENT
  Sex: Female

DRUGS (2)
  1. CLONAZEPAM. [Suspect]
     Active Substance: CLONAZEPAM
     Dosage: FORM OF ADMIN: DISINTEGRATING TABLET
     Route: 048
  2. CLONAZEPAM. [Suspect]
     Active Substance: CLONAZEPAM
     Dosage: FORM OF ADMIN: DISINTEGRATING TABLET, DOSE: SPLITTING THE 0.5 MG TABLETS
     Route: 048
     Dates: start: 2018

REACTIONS (2)
  - Product residue present [Unknown]
  - Product solubility abnormal [Unknown]
